FAERS Safety Report 19478014 (Version 1)
Quarter: 2021Q2

REPORT INFORMATION
  Report Type: Spontaneous
  Country: US (occurrence: US)
  Receive Date: 20210630
  Receipt Date: 20210630
  Transmission Date: 20210717
  Serious: No
  Sender: FDA-Public Use
  Company Number: US-ASTRAZENECA-2021A510994

PATIENT

DRUGS (1)
  1. BREZTRI AEROSPHERE [Suspect]
     Active Substance: BUDESONIDE\FORMOTEROL\GLYCOPYRRONIUM
     Dosage: 120 INHALATION
     Route: 055

REACTIONS (4)
  - Drug dose omission by device [Recovered/Resolved]
  - Cough [Not Recovered/Not Resolved]
  - Product use issue [Recovered/Resolved]
  - Device delivery system issue [Unknown]
